FAERS Safety Report 21372430 (Version 1)
Quarter: 2022Q3

REPORT INFORMATION
  Report Type: Report from Study
  Country: ZA (occurrence: ZA)
  Receive Date: 20220924
  Receipt Date: 20220924
  Transmission Date: 20221027
  Serious: Yes (Other)
  Sender: FDA-Public Use
  Company Number: ZA-NOVARTISPH-NVSC2022ZA170296

PATIENT
  Age: 49 Year
  Sex: Female

DRUGS (1)
  1. FINGOLIMOD HYDROCHLORIDE [Suspect]
     Active Substance: FINGOLIMOD HYDROCHLORIDE
     Indication: Relapsing-remitting multiple sclerosis
     Dosage: 0.5 MG, QD
     Route: 048
     Dates: start: 20191107

REACTIONS (18)
  - Leukopenia [Unknown]
  - HIV infection [Unknown]
  - Malaria [Unknown]
  - Tuberculosis [Unknown]
  - Myelosuppression [Unknown]
  - Plasma cell myeloma [Unknown]
  - Bone marrow infiltration [Unknown]
  - Sepsis [Unknown]
  - Typhoid fever [Unknown]
  - Autoimmune disorder [Unknown]
  - Sensory disturbance [Unknown]
  - Vitamin B1 deficiency [Unknown]
  - Folate deficiency [Unknown]
  - Zinc deficiency [Unknown]
  - Copper deficiency [Unknown]
  - Hypersplenism [Unknown]
  - Congenital anomaly [Unknown]
  - Influenza [Unknown]

NARRATIVE: CASE EVENT DATE: 20201012
